FAERS Safety Report 16595554 (Version 3)
Quarter: 2019Q3

REPORT INFORMATION
  Report Type: Spontaneous
  Country: US (occurrence: US)
  Receive Date: 20190719
  Receipt Date: 20190802
  Transmission Date: 20191004
  Serious: No
  Sender: FDA-Public Use
  Company Number: US-BIOGEN-2019BI00745395

PATIENT
  Age: 27 Year
  Sex: Female

DRUGS (1)
  1. TYSABRI [Suspect]
     Active Substance: NATALIZUMAB
     Indication: MULTIPLE SCLEROSIS
     Route: 065
     Dates: start: 20190404, end: 20190502

REACTIONS (14)
  - Costochondritis [Unknown]
  - Pharyngeal swelling [Unknown]
  - Drug specific antibody present [Recovered/Resolved]
  - Infusion related reaction [Recovered/Resolved]
  - Urticaria [Unknown]
  - Panic attack [Not Recovered/Not Resolved]
  - Chest discomfort [Unknown]
  - White blood cell count increased [Unknown]
  - Pyrexia [Unknown]
  - Anxiety [Not Recovered/Not Resolved]
  - Multiple sclerosis relapse [Unknown]
  - Chest pain [Unknown]
  - Throat tightness [Unknown]
  - Dyspepsia [Unknown]

NARRATIVE: CASE EVENT DATE: 20190502
